FAERS Safety Report 21129598 (Version 1)
Quarter: 2022Q3

REPORT INFORMATION
  Report Type: Report from Study
  Country: US (occurrence: US)
  Receive Date: 20220726
  Receipt Date: 20220726
  Transmission Date: 20221027
  Serious: Yes (Other)
  Sender: FDA-Public Use
  Company Number: US-ABBVIE-22K-163-4474237-00

PATIENT
  Sex: Female

DRUGS (3)
  1. HUMIRA [Suspect]
     Active Substance: ADALIMUMAB
     Indication: Crohn^s disease
     Route: 058
  2. COVID-19 VACCINE [Concomitant]
     Indication: COVID-19 immunisation
     Dosage: 1ST DOSE
     Route: 030
     Dates: start: 2021, end: 2021
  3. COVID-19 VACCINE [Concomitant]
     Dosage: 2ND DOSE
     Route: 030
     Dates: start: 2021, end: 2021

REACTIONS (3)
  - Abnormal faeces [Recovering/Resolving]
  - Colon operation [Recovering/Resolving]
  - Insomnia [Recovering/Resolving]
